FAERS Safety Report 15490498 (Version 5)
Quarter: 2020Q4

REPORT INFORMATION
  Report Type: Spontaneous
  Country: GB (occurrence: GB)
  Receive Date: 20181011
  Receipt Date: 20201022
  Transmission Date: 20210113
  Serious: Yes (Death, Hospitalization, Disabling, Other)
  Sender: FDA-Public Use
  Company Number: PHHY2018GB120635

PATIENT
  Age: 76 Year
  Sex: Male
  Weight: 69 kg

DRUGS (36)
  1. ALFACALCIDOL [Concomitant]
     Active Substance: ALFACALCIDOL
     Indication: PRODUCT USED FOR UNKNOWN INDICATION
     Dosage: 500 NG, QD
     Route: 048
  2. ALLOPURINOL. [Concomitant]
     Active Substance: ALLOPURINOL
     Indication: PRODUCT USED FOR UNKNOWN INDICATION
     Dosage: 100 MILLIGRAM, QD
     Route: 048
  3. OMEPRAZOLE. [Suspect]
     Active Substance: OMEPRAZOLE
     Indication: PRODUCT USED FOR UNKNOWN INDICATION
     Dosage: MORNING
     Route: 048
  4. FUROSEMIDE. [Concomitant]
     Active Substance: FUROSEMIDE
     Dosage: 80 MG, QMO
     Route: 048
  5. SENNA [Concomitant]
     Active Substance: SENNA LEAF\SENNOSIDES\SENNOSIDES A AND B
     Dosage: NIGHT
     Route: 048
  6. GTN [Concomitant]
     Active Substance: NITROGLYCERIN
     Indication: PRODUCT USED FOR UNKNOWN INDICATION
     Dosage: UNK
     Route: 065
  7. GLUCAGON. [Concomitant]
     Active Substance: GLUCAGON
     Indication: PRODUCT USED FOR UNKNOWN INDICATION
     Dosage: UNK
     Route: 030
  8. LAXATIVE [Concomitant]
     Active Substance: UNSPECIFIED INGREDIENT
     Indication: PRODUCT USED FOR UNKNOWN INDICATION
     Dosage: UNK
     Route: 065
  9. GLICLAZIDE [Concomitant]
     Active Substance: GLICLAZIDE
     Dosage: MORNING
     Route: 048
  10. PREDNISOLONE. [Concomitant]
     Active Substance: PREDNISOLONE
     Dosage: MORNING
     Route: 048
  11. DOXYCYCLINE. [Concomitant]
     Active Substance: DOXYCYCLINE
     Indication: LOWER RESPIRATORY TRACT INFECTION
     Dosage: UNK
     Route: 065
  12. SALBUTAMOL [Concomitant]
     Active Substance: ALBUTEROL
     Indication: PRODUCT USED FOR UNKNOWN INDICATION
     Dosage: UNK
     Route: 065
  13. DEXTROSE. [Concomitant]
     Active Substance: DEXTROSE
     Indication: PRODUCT USED FOR UNKNOWN INDICATION
     Dosage: UNK
     Route: 042
  14. BETAHISTINE [Concomitant]
     Active Substance: BETAHISTINE
     Indication: PRODUCT USED FOR UNKNOWN INDICATION
     Dosage: MORNING
     Route: 048
  15. CHOLECALCIFEROL [Concomitant]
     Active Substance: CHOLECALCIFEROL
     Indication: PRODUCT USED FOR UNKNOWN INDICATION
     Dosage: MORNING
     Route: 048
  16. FUROSEMIDE. [Concomitant]
     Active Substance: FUROSEMIDE
     Indication: PRODUCT USED FOR UNKNOWN INDICATION
     Dosage: 80 MG, MONTHLY
     Route: 048
  17. GLICLAZIDE [Concomitant]
     Active Substance: GLICLAZIDE
     Indication: PRODUCT USED FOR UNKNOWN INDICATION
     Dosage: 40 MG, MONTHLY
     Route: 048
  18. SENNA [Concomitant]
     Active Substance: SENNA LEAF\SENNOSIDES\SENNOSIDES A AND B
     Indication: PRODUCT USED FOR UNKNOWN INDICATION
     Dosage: 5 MG, UNK
     Route: 048
  19. GLUCOGEL [Concomitant]
     Indication: PRODUCT USED FOR UNKNOWN INDICATION
     Dosage: UNK
     Route: 065
  20. BETAHISTINE [Concomitant]
     Active Substance: BETAHISTINE
     Dosage: 8 MG, MONTHLY
     Route: 048
  21. FUROSEMIDE. [Concomitant]
     Active Substance: FUROSEMIDE
     Dosage: 40 MG, UNK 12 PM
     Route: 048
  22. ADOPORT [Suspect]
     Active Substance: TACROLIMUS
     Indication: RENAL TRANSPLANT
     Dosage: 1.5 MG, BID
     Route: 048
     Dates: start: 20180127
  23. ALFACALCIDOL [Concomitant]
     Active Substance: ALFACALCIDOL
     Indication: PRODUCT USED FOR UNKNOWN INDICATION
  24. EPLERENONE. [Concomitant]
     Active Substance: EPLERENONE
     Indication: PRODUCT USED FOR UNKNOWN INDICATION
     Dosage: MORNING
     Route: 048
  25. HYDROCORTISONE ^EVANS^ [Concomitant]
     Indication: PRODUCT USED FOR UNKNOWN INDICATION
     Dosage: 50 MG, TID
     Route: 042
  26. TACROLIMUS. [Interacting]
     Active Substance: TACROLIMUS
     Indication: PROPHYLAXIS AGAINST TRANSPLANT REJECTION
     Dosage: 1.5 MG, QD
     Route: 048
     Dates: start: 20180127, end: 20180131
  27. PREDNISOLONE. [Concomitant]
     Active Substance: PREDNISOLONE
     Indication: PRODUCT USED FOR UNKNOWN INDICATION
     Dosage: 5 MG, MONTHLY
     Route: 048
  28. TACROLIMUS. [Suspect]
     Active Substance: TACROLIMUS
     Indication: RENAL TRANSPLANT
     Dosage: 2 MG, BID
     Route: 065
     Dates: end: 20180130
  29. TACROLIMUS. [Interacting]
     Active Substance: TACROLIMUS
     Dosage: 1.5 MG, BID (3 MILLIGRAM, QD)
     Route: 048
     Dates: start: 20180127
  30. CLARITHROMYCIN. [Suspect]
     Active Substance: CLARITHROMYCIN
     Indication: PNEUMONIA
     Dosage: 500 MG, QD
     Route: 042
     Dates: start: 20180127, end: 20180131
  31. CLARITHROMYCIN. [Suspect]
     Active Substance: CLARITHROMYCIN
     Indication: LOWER RESPIRATORY TRACT INFECTION
  32. BISOPROLOL [Suspect]
     Active Substance: BISOPROLOL
     Indication: PRODUCT USED FOR UNKNOWN INDICATION
     Dosage: UNK
     Route: 065
  33. CEFUROXIME. [Suspect]
     Active Substance: CEFUROXIME
     Indication: PRODUCT USED FOR UNKNOWN INDICATION
     Dosage: UNK
     Route: 042
  34. PENICILLIN [Suspect]
     Active Substance: PENICILLIN
     Indication: PRODUCT USED FOR UNKNOWN INDICATION
     Dosage: UNK
     Route: 065
  35. EPLERENONE. [Concomitant]
     Active Substance: EPLERENONE
     Dosage: 25 MG, MONTHLY
     Route: 048
  36. FUROSEMIDE. [Concomitant]
     Active Substance: FUROSEMIDE
     Dosage: 80MG MORNING, 40MG 12PM
     Route: 048

REACTIONS (32)
  - Toxicity to various agents [Unknown]
  - Haemoptysis [Unknown]
  - Rash [Unknown]
  - Cough [Unknown]
  - Renal impairment [Unknown]
  - Dysphagia [Unknown]
  - Oesophageal carcinoma [Fatal]
  - Myocardial ischaemia [Fatal]
  - Multimorbidity [Unknown]
  - Productive cough [Unknown]
  - Lung consolidation [Unknown]
  - Cardiac failure congestive [Fatal]
  - Oesophageal perforation [Unknown]
  - Lower respiratory tract infection [Unknown]
  - Transplant failure [Recovered/Resolved with Sequelae]
  - Drug level increased [Recovered/Resolved with Sequelae]
  - Acute kidney injury [Unknown]
  - Swelling [Unknown]
  - Hypoglycaemia [Unknown]
  - Superinfection [Unknown]
  - Immunosuppressant drug level increased [Fatal]
  - Pyrexia [Unknown]
  - Inflammatory marker increased [Unknown]
  - Labelled drug-drug interaction medication error [Unknown]
  - Soft tissue mass [Unknown]
  - Sepsis [Unknown]
  - Cardiomegaly [Unknown]
  - Pneumonia [Unknown]
  - Ascites [Unknown]
  - Malaise [Unknown]
  - Rales [Unknown]
  - Pleural effusion [Unknown]

NARRATIVE: CASE EVENT DATE: 20180118
